FAERS Safety Report 5651206-5 (Version None)
Quarter: 2008Q1

REPORT INFORMATION
  Report Type: 
  Country: None (occurrence: None)
  Receive Date: 20080305
  Receipt Date: 20080221
  Transmission Date: 20080703
  Serious: Yes (Life-Threatening)
  Sender: FDA-Public Use
  Company Number: US-BAYER-200814371NA

PATIENT
  Age: 57 Year
  Sex: Male

DRUGS (2)
  1. ULTRAVIST (PHARMACY BULK) [Suspect]
     Indication: COMPUTERISED TOMOGRAM
     Route: 042
     Dates: start: 20071106, end: 20071106
  2. ORAL CONTAST MEDIA [Concomitant]
     Route: 048
     Dates: start: 20071106, end: 20071106

REACTIONS (3)
  - BONE PAIN [None]
  - CHILLS [None]
  - RASH [None]
